FAERS Safety Report 10287762 (Version 3)
Quarter: 2015Q2

REPORT INFORMATION
  Report Type: Spontaneous
  Country: JP (occurrence: JP)
  Receive Date: 20140709
  Receipt Date: 20150406
  Transmission Date: 20150821
  Serious: Yes (Death, Disabling, Other)
  Sender: FDA-Public Use
  Company Number: JP-ROCHE-1429993

PATIENT
  Age: 36 Year
  Sex: Male
  Weight: 64 kg

DRUGS (3)
  1. AVASTIN [Suspect]
     Active Substance: BEVACIZUMAB
     Indication: MALIGNANT GLIOMA
     Dosage: COMPLETED TREATMENT CYCLE NUMBER: 11
     Route: 041
     Dates: start: 20131105, end: 20140522
  2. TEMODAL [Concomitant]
     Active Substance: TEMOZOLOMIDE
     Indication: MALIGNANT GLIOMA
     Dosage: COMPLETED TREATMENT CYCLE NUMBER: 7
     Route: 048
     Dates: start: 20131105, end: 20140526
  3. WARFARIN [Suspect]
     Active Substance: WARFARIN
     Indication: PRODUCT USED FOR UNKNOWN INDICATION
     Dosage: DOSAGE UNCERTAIN
     Route: 048

REACTIONS (3)
  - Brain stem haemorrhage [Fatal]
  - Renal failure [Not Recovered/Not Resolved]
  - Malignant glioma [Fatal]

NARRATIVE: CASE EVENT DATE: 20140609
